FAERS Safety Report 13350453 (Version 2)
Quarter: 2017Q2

REPORT INFORMATION
  Report Type: Report from Study
  Country: CO (occurrence: CO)
  Receive Date: 20170320
  Receipt Date: 20170621
  Transmission Date: 20170830
  Serious: Yes (Hospitalization, Other)
  Sender: FDA-Public Use
  Company Number: CO-AMGEN-COLSL2017040034

PATIENT
  Age: 46 Year
  Sex: Female

DRUGS (1)
  1. MIMPARA [Suspect]
     Active Substance: CINACALCET HYDROCHLORIDE
     Indication: HYPERPARATHYROIDISM SECONDARY
     Dosage: UNK, QD
     Route: 048
     Dates: start: 20151028, end: 20170220

REACTIONS (5)
  - Hypocalcaemia [Recovering/Resolving]
  - Nodule [Recovered/Resolved]
  - Off label use [Recovered/Resolved]
  - Blood parathyroid hormone increased [Recovering/Resolving]
  - Hyperphosphataemia [Recovering/Resolving]

NARRATIVE: CASE EVENT DATE: 20170201
